FAERS Safety Report 19509112 (Version 2)
Quarter: 2021Q3

REPORT INFORMATION
  Report Type: Report from Study
  Country: US (occurrence: US)
  Receive Date: 20210709
  Receipt Date: 20210715
  Transmission Date: 20211014
  Serious: Yes (Hospitalization, Other)
  Sender: FDA-Public Use
  Company Number: US-JNJFOC-20210702431

PATIENT

DRUGS (1)
  1. STELARA [Suspect]
     Active Substance: USTEKINUMAB
     Indication: CROHN^S DISEASE
     Route: 058

REACTIONS (13)
  - Sinusitis [Unknown]
  - Injection site reaction [Unknown]
  - Drug ineffective [Unknown]
  - Pneumonia [Unknown]
  - Infusion site reaction [Unknown]
  - Pharyngitis [Unknown]
  - Therapeutic product effect incomplete [Unknown]
  - Impetigo [Unknown]
  - Scrotal abscess [Unknown]
  - Herpes zoster [Unknown]
  - Joint swelling [Recovered/Resolved]
  - Cystitis [Unknown]
  - Mycobacterium avium complex infection [Unknown]
